FAERS Safety Report 5305850-5 (Version None)
Quarter: 2007Q2

REPORT INFORMATION
  Report Type: 
  Country: None (occurrence: None)
  Receive Date: 20070424
  Receipt Date: 20070413
  Transmission Date: 20071010
  Serious: Yes (Death, Hospitalization)
  Sender: FDA-Public Use
  Company Number: JP-JNJFOC-20070306665

PATIENT
  Sex: Female
  Weight: 65 kg

DRUGS (22)
  1. REMICADE [Suspect]
  2. REMICADE [Suspect]
  3. REMICADE [Suspect]
  4. REMICADE [Suspect]
  5. REMICADE [Suspect]
  6. REMICADE [Suspect]
  7. REMICADE [Suspect]
  8. REMICADE [Suspect]
  9. REMICADE [Suspect]
     Dosage: 8 INFUSIONS ON UNSPECIFIED DATES
  10. REMICADE [Suspect]
  11. REMICADE [Suspect]
  12. REMICADE [Suspect]
     Indication: RHEUMATOID ARTHRITIS
  13. RHEUMATREX [Suspect]
     Route: 048
  14. RHEUMATREX [Suspect]
     Route: 048
  15. RHEUMATREX [Suspect]
     Indication: RHEUMATOID ARTHRITIS
     Route: 048
  16. ADRENAL HORMONE PREPARATION [Concomitant]
     Indication: RHEUMATOID ARTHRITIS
  17. PREDONINE [Concomitant]
     Indication: RHEUMATOID ARTHRITIS
     Route: 048
  18. INFREE [Concomitant]
     Indication: RHEUMATOID ARTHRITIS
     Route: 048
  19. FOLIAMIN [Concomitant]
     Route: 048
  20. SELBEX [Concomitant]
     Route: 048
  21. ALESION [Concomitant]
     Route: 048
  22. AMOBAN [Concomitant]
     Route: 048

REACTIONS (4)
  - HEPATIC FAILURE [None]
  - MALAISE [None]
  - MULTI-ORGAN FAILURE [None]
  - PYREXIA [None]
